FAERS Safety Report 22038625 (Version 1)
Quarter: 2023Q1

REPORT INFORMATION
  Report Type: Other
  Country: IN (occurrence: None)
  Receive Date: 20230227
  Receipt Date: 20230227
  Transmission Date: 20230417
  Serious: Yes (Other)
  Sender: FDA-Public Use
  Company Number: IN-ROCHE-3169368

PATIENT
  Age: 71 Year
  Sex: Male

DRUGS (1)
  1. TECENTRIQ [Suspect]
     Active Substance: ATEZOLIZUMAB
     Indication: Hepatocellular carcinoma
     Route: 042
     Dates: start: 20220805

REACTIONS (11)
  - Off label use [Unknown]
  - Malaise [Unknown]
  - Ammonia increased [Unknown]
  - Blood creatinine increased [Unknown]
  - Hyponatraemia [Unknown]
  - Thyroid disorder [Unknown]
  - Electrolyte imbalance [Unknown]
  - Internal haemorrhage [Unknown]
  - Mental disorder [Unknown]
  - Haemoglobin decreased [Unknown]
  - Off label use [Unknown]
